FAERS Safety Report 8168586 (Version 3)
Quarter: 2013Q2

REPORT INFORMATION
  Report Type: Spontaneous
  Country: US (occurrence: US)
  Receive Date: 20111004
  Receipt Date: 20130524
  Transmission Date: 20140414
  Serious: Yes (Death)
  Sender: FDA-Public Use
  Company Number: US-RB-032381-11

PATIENT
  Sex: Male
  Weight: 79 kg

DRUGS (6)
  1. SUBOXONE FILM [Suspect]
     Indication: DRUG DEPENDENCE
     Dosage: SUBOXONE FILM
     Route: 060
     Dates: start: 20110519, end: 20110909
  2. TRAZODONE [Concomitant]
     Indication: INSOMNIA
     Dosage: 1 TO 2 AT BEDTIME AS NEEDED
     Route: 048
     Dates: start: 20110526, end: 201109
  3. CIALIS [Concomitant]
     Indication: ERECTILE DYSFUNCTION
     Dosage: 1 TABL WITHOUT REGARD TO TIMING OF SEXUAL ACTIVITY, MAY INCREASE TO AS MUCH AS 4 TABS AT ONCE
     Route: 048
     Dates: start: 20110630, end: 201109
  4. LEXAPRO [Concomitant]
     Indication: DEPRESSION
     Route: 048
     Dates: start: 20110728, end: 201109
  5. NICOTINE [Concomitant]
     Indication: PRODUCT USED FOR UNKNOWN INDICATION
     Dosage: DOSING DETAILS UNKNOWN
     Route: 065
     Dates: end: 201109
  6. CAFFEINE [Concomitant]
     Indication: PRODUCT USED FOR UNKNOWN INDICATION
     Dosage: DOSING DETAILS UNKNOWN
     Route: 065
     Dates: end: 201109

REACTIONS (2)
  - Arteriosclerosis [Fatal]
  - Hypertensive heart disease [Fatal]
